FAERS Safety Report 9324853 (Version 1)
Quarter: 2013Q2

REPORT INFORMATION
  Report Type: Spontaneous
  Country: GB (occurrence: None)
  Receive Date: 20130529
  Receipt Date: 20130529
  Transmission Date: 20140414
  Serious: Yes (Hospitalization)
  Sender: FDA-Public Use
  Company Number: TUK2013A00141

PATIENT
  Age: 70 Year
  Sex: Male

DRUGS (7)
  1. PIOGLITAZONE [Suspect]
     Indication: PRODUCT USED FOR UNKNOWN INDICATION
     Dosage: 30 MG (15 MG, 2 IN 1 D)
     Route: 048
     Dates: start: 201101, end: 20130415
  2. EZETIMIBE (EZETIMIBE) [Concomitant]
  3. METFORMIN(METFORMIN) [Concomitant]
  4. MIZOLASTINE(MIZOLASTINE) [Concomitant]
  5. NAPROXEN (NAPROXEN) [Concomitant]
  6. OMEPRAZOLE (OMEPRAZOLE) [Concomitant]
  7. QUININE SULPHATE(QUININE SULFATE) [Concomitant]

REACTIONS (1)
  - Pericardial effusion [None]
